FAERS Safety Report 4416480-1 (Version None)
Quarter: 2004Q3

REPORT INFORMATION
  Report Type: 
  Country: None (occurrence: None)
  Receive Date: 20040730
  Receipt Date: 20040722
  Transmission Date: 20050211
  Serious: Yes (Hospitalization)
  Sender: FDA-Public Use
  Company Number: US-2004-027325

PATIENT
  Age: 45 Year
  Sex: Female

DRUGS (1)
  1. BETASERON [Suspect]
     Indication: MULTIPLE SCLEROSIS
     Dosage: 8 MIU, EVERY 2D, SUBCUTANEOUS
     Route: 058
     Dates: start: 19960207

REACTIONS (6)
  - BACK PAIN [None]
  - BEDRIDDEN [None]
  - CHOLELITHIASIS [None]
  - FALL [None]
  - JOINT INJURY [None]
  - PULMONARY EMBOLISM [None]
